FAERS Safety Report 6812817-4 (Version None)
Quarter: 2010Q3

REPORT INFORMATION
  Report Type: 
  Country: None (occurrence: None)
  Receive Date: 20100701
  Receipt Date: 20100622
  Transmission Date: 20110219
  Serious: Yes (Hospitalization)
  Sender: FDA-Public Use
  Company Number: B0663242A

PATIENT
  Sex: Female
  Weight: 31 kg

DRUGS (3)
  1. SERETIDE [Suspect]
     Indication: ASTHMA
     Route: 055
     Dates: start: 20100612, end: 20100615
  2. LORATADINE [Concomitant]
     Indication: ASTHMA
     Route: 048
     Dates: start: 20100601
  3. BECLOMETHASONE DIPROPIONATE [Concomitant]
     Indication: ASTHMA
     Route: 065

REACTIONS (3)
  - BRONCHIAL OBSTRUCTION [None]
  - COUGH [None]
  - WHEEZING [None]
